FAERS Safety Report 8367331-4 (Version None)
Quarter: 2012Q2

REPORT INFORMATION
  Report Type: 
  Country: None (occurrence: None)
  Receive Date: 20120517
  Receipt Date: 20120516
  Transmission Date: 20120825
  Serious: Yes (Other)
  Sender: FDA-Public Use
  Company Number: US-PFIZER INC-2012119686

PATIENT
  Sex: Male
  Weight: 96.145 kg

DRUGS (4)
  1. NEXIUM [Concomitant]
     Indication: GASTROOESOPHAGEAL REFLUX DISEASE
  2. CHANTIX [Suspect]
     Indication: SMOKING CESSATION THERAPY
     Dosage: 0.5 MG, 1X/DAY
     Route: 048
  3. NEXIUM [Concomitant]
     Indication: BARRETT'S OESOPHAGUS
     Dosage: UNK
  4. CLONAZEPAM [Concomitant]
     Indication: ANXIETY
     Dosage: UNK

REACTIONS (4)
  - DYSGEUSIA [None]
  - GASTRITIS EROSIVE [None]
  - GASTRIC INFECTION [None]
  - CHEST PAIN [None]
